FAERS Safety Report 8559183-4 (Version None)
Quarter: 2012Q3

REPORT INFORMATION
  Report Type: 
  Country: None (occurrence: None)
  Receive Date: 20120720
  Receipt Date: 20120709
  Transmission Date: 20120928
  Serious: Yes (Hospitalization, Other)
  Sender: FDA-Public Use
  Company Number: 2012P1049006

PATIENT
  Age: 82 Year
  Sex: Male

DRUGS (6)
  1. CIALIS [Suspect]
     Dates: start: 20120703, end: 20120703
  2. LIPITOR [Concomitant]
  3. DIGOXIN [Suspect]
     Indication: CARDIAC FAILURE
     Dosage: 1 DOSE,QD;PO
     Route: 048
     Dates: start: 20120703, end: 20120704
  4. HYDROCHLOROTHIAZDE TAB [Concomitant]
  5. LOSARTAN POTASSIUM [Concomitant]
  6. ASPIRIN [Concomitant]

REACTIONS (1)
  - SYNCOPE [None]
